FAERS Safety Report 14642273 (Version 4)
Quarter: 2018Q3

REPORT INFORMATION
  Report Type: Spontaneous
  Country: JP (occurrence: JP)
  Receive Date: 20180315
  Receipt Date: 20180911
  Transmission Date: 20181010
  Serious: Yes (Life-Threatening, Hospitalization, Other)
  Sender: FDA-Public Use
  Company Number: JP-SA-2018SA034456

PATIENT
  Age: 63 Year
  Sex: Female
  Weight: 75.6 kg

DRUGS (16)
  1. HYALEIN MINI [Concomitant]
     Active Substance: HYALURONATE SODIUM
     Indication: DRY EYE
     Dosage: UNK UNK, QD
     Route: 047
     Dates: start: 20161124
  2. LIVOSTIN [Concomitant]
     Active Substance: LEVOCABASTINE HYDROCHLORIDE
     Indication: CONJUNCTIVITIS ALLERGIC
     Dosage: UNK UNK, QD
     Route: 047
     Dates: start: 20170523
  3. JZOLOFT [Concomitant]
     Active Substance: SERTRALINE HYDROCHLORIDE
     Indication: PANIC DISORDER
     Dosage: UNK UNK, QD
     Route: 048
     Dates: start: 20140805
  4. LEXOTAN [Concomitant]
     Active Substance: BROMAZEPAM
     Indication: PANIC DISORDER
     Dosage: UNK UNK, QD
     Route: 048
     Dates: start: 20160510
  5. WYPAX [Concomitant]
     Active Substance: LORAZEPAM
     Indication: PANIC DISORDER
     Dosage: UNK UNK, QD
     Route: 048
     Dates: start: 20150616
  6. NITROPEN [Concomitant]
     Active Substance: NITROGLYCERIN
     Indication: CHEST PAIN
     Dosage: UNK UNK, QD
     Route: 060
     Dates: start: 20141121
  7. METGLUCO [Concomitant]
     Active Substance: METFORMIN HYDROCHLORIDE
     Indication: TYPE 2 DIABETES MELLITUS
     Dosage: 750 UNK
     Route: 048
     Dates: start: 20170821
  8. DEPAS [ETIZOLAM] [Concomitant]
     Active Substance: ETIZOLAM
     Indication: PANIC DISORDER
     Dosage: UNK UNK, QD
     Route: 048
     Dates: start: 20150714
  9. GATIFLO [Concomitant]
     Active Substance: GATIFLOXACIN
     Indication: CONJUNCTIVITIS BACTERIAL
     Dosage: UNK UNK, QD
     Route: 047
     Dates: start: 20170424
  10. ALLEGRA [Suspect]
     Active Substance: FEXOFENADINE HYDROCHLORIDE
     Indication: NASOPHARYNGITIS
     Dosage: UNK UNK, QD
     Route: 048
     Dates: start: 20180109
  11. DESYREL [Concomitant]
     Active Substance: TRAZODONE HYDROCHLORIDE
     Indication: PANIC DISORDER
     Dosage: UNK UNK, QD
     Route: 048
     Dates: start: 2013
  12. MOHRUS L [Concomitant]
     Active Substance: KETOPROFEN
     Indication: PERIARTHRITIS
     Dosage: 2 PATCHES/DAY
     Route: 062
     Dates: start: 20151125
  13. CALONAL [Concomitant]
     Active Substance: ACETAMINOPHEN
     Indication: NASOPHARYNGITIS
     Dosage: UNK UNK, QD
     Route: 048
     Dates: start: 20180109
  14. LANSOPRAZOLE. [Concomitant]
     Active Substance: LANSOPRAZOLE
     Indication: CHRONIC GASTRITIS
     Dosage: 30 MG,QD
     Route: 048
     Dates: start: 20160705
  15. MYSLEE [Concomitant]
     Active Substance: ZOLPIDEM TARTRATE
     Indication: INSOMNIA
     Dosage: UNK UNK, QD
     Route: 048
     Dates: start: 20150616
  16. TAGAMET [Concomitant]
     Active Substance: CIMETIDINE
     Indication: CHRONIC GASTRITIS
     Dosage: UNK UNK, QD
     Route: 048
     Dates: start: 20170920

REACTIONS (5)
  - Pneumonia aspiration [Recovered/Resolved]
  - Suicide attempt [Recovered/Resolved with Sequelae]
  - Hypoglycaemic encephalopathy [Recovering/Resolving]
  - Hypoglycaemic unconsciousness [Recovered/Resolved]
  - Intentional overdose [Unknown]

NARRATIVE: CASE EVENT DATE: 20180131
